FAERS Safety Report 15942908 (Version 2)
Quarter: 2019Q1

REPORT INFORMATION
  Report Type: Spontaneous
  Country: FR (occurrence: FR)
  Receive Date: 20190210
  Receipt Date: 20190225
  Transmission Date: 20190417
  Serious: Yes (Death, Hospitalization, Congenital Anomaly, Other)
  Sender: FDA-Public Use
  Company Number: PHHY2019FR029851

PATIENT
  Sex: Male
  Weight: .7 kg

DRUGS (2)
  1. BISOPROLOL [Suspect]
     Active Substance: BISOPROLOL
     Indication: FOETAL EXPOSURE DURING PREGNANCY
     Dosage: MATERNAL DOSE: 5 MG, QD
     Route: 064
  2. CANDESARTAN CILEXETIL. [Suspect]
     Active Substance: CANDESARTAN CILEXETIL
     Indication: FOETAL EXPOSURE DURING PREGNANCY
     Dosage: MATERNAL DOSE:16 MG, QD AND 8 MG QD
     Route: 064

REACTIONS (12)
  - Foetal exposure during pregnancy [Fatal]
  - Hypocalvaria [Fatal]
  - Low birth weight baby [Unknown]
  - Oligohydramnios [Fatal]
  - Pulmonary hypoplasia [Fatal]
  - Anuria [Fatal]
  - Potter^s syndrome [Fatal]
  - Renal disorder [Fatal]
  - Premature baby [Unknown]
  - Hypoventilation neonatal [Fatal]
  - Foetal growth restriction [Fatal]
  - Intestinal ischaemia [Fatal]
